FAERS Safety Report 5873561-3 (Version None)
Quarter: 2008Q3

REPORT INFORMATION
  Report Type: 
  Country: None (occurrence: None)
  Receive Date: 20080908
  Receipt Date: 20080818
  Transmission Date: 20090109
  Serious: No
  Sender: FDA-Public Use
  Company Number: US-BAYER-200811088BCC

PATIENT
  Age: 51 Year
  Sex: Male
  Weight: 79 kg

DRUGS (6)
  1. ALEVE (CAPLET) [Suspect]
     Indication: EPICONDYLITIS
     Dosage: TOTAL DAILY DOSE: 440 MG  UNIT DOSE: 220 MG
     Route: 048
     Dates: start: 20080201
  2. LIPITOR [Concomitant]
  3. LISINOPRIL [Concomitant]
  4. PREVACID [Concomitant]
  5. AVODART [Concomitant]
  6. DIOVAN [Concomitant]

REACTIONS (1)
  - GLOSSODYNIA [None]
